FAERS Safety Report 7103963-9 (Version None)
Quarter: 2010Q4

REPORT INFORMATION
  Report Type: 
  Country: None (occurrence: None)
  Receive Date: 20101115
  Receipt Date: 20100506
  Transmission Date: 20110411
  Serious: No
  Sender: FDA-Public Use
  Company Number: US-ALLERGAN-1005940US

PATIENT
  Age: 53 Year
  Sex: Female

DRUGS (1)
  1. BOTOX COSMETIC [Suspect]
     Indication: SKIN WRINKLING
     Dosage: 95 UNITS, SINGLE
     Route: 030
     Dates: start: 20100505, end: 20100505

REACTIONS (2)
  - EAR PRURITUS [None]
  - NERVOUSNESS [None]
